FAERS Safety Report 5844618-8 (Version None)
Quarter: 2008Q3

REPORT INFORMATION
  Report Type: 
  Country: None (occurrence: None)
  Receive Date: 20080814
  Receipt Date: 20080804
  Transmission Date: 20090109
  Serious: Yes (Other)
  Sender: FDA-Public Use
  Company Number: FR-JNJFOC-20080800804

PATIENT
  Age: 45 Year
  Sex: Female

DRUGS (7)
  1. REMICADE [Suspect]
     Indication: ANKYLOSING SPONDYLITIS
     Route: 042
  2. ADROVANCE [Suspect]
     Indication: ANKYLOSING SPONDYLITIS
  3. CORTANCYL [Concomitant]
     Route: 048
  4. OGAST [Concomitant]
     Route: 048
  5. PROZAC [Concomitant]
  6. TERCIAN [Concomitant]
     Route: 048
  7. STILNOX [Concomitant]
     Route: 048

REACTIONS (2)
  - CARDIAC FAILURE [None]
  - INTRACRANIAL ANEURYSM [None]
